FAERS Safety Report 9217320 (Version 2)
Quarter: 2014Q1

REPORT INFORMATION
  Report Type: Spontaneous
  Country: US (occurrence: None)
  Receive Date: 20130404
  Receipt Date: 20140122
  Transmission Date: 20141002
  Serious: Yes (Other)
  Sender: FDA-Public Use
  Company Number: JPI-P-030933

PATIENT
  Age: 61 Year
  Sex: Male

DRUGS (1)
  1. XYREM [Suspect]
     Indication: PRODUCT USED FOR UNKNOWN INDICATION
     Dosage: 4.5 GM (2.25 GM, 2 IN 1 D), ORAL
     Route: 048
     Dates: start: 200212

REACTIONS (4)
  - Back pain [None]
  - Surgery [None]
  - Device breakage [None]
  - Surgery [None]
